FAERS Safety Report 7830683-5 (Version None)
Quarter: 2011Q4

REPORT INFORMATION
  Report Type: 
  Country: None (occurrence: None)
  Receive Date: 20111021
  Receipt Date: 20111017
  Transmission Date: 20120403
  Serious: Yes (Other)
  Sender: FDA-Public Use
  Company Number: FR-BRISTOL-MYERS SQUIBB COMPANY-16170185

PATIENT
  Age: 73 Year
  Sex: Male

DRUGS (2)
  1. SULFASALAZINE [Concomitant]
  2. ORENCIA [Suspect]
     Dates: start: 20080701, end: 20110801

REACTIONS (4)
  - CYTOLYTIC HEPATITIS [None]
  - HEPATIC STEATOSIS [None]
  - GAMMA-GLUTAMYLTRANSFERASE INCREASED [None]
  - HEPATOMEGALY [None]
